FAERS Safety Report 11452400 (Version 1)
Quarter: 2015Q3

REPORT INFORMATION
  Report Type: Spontaneous
  Country: US (occurrence: US)
  Receive Date: 20150831
  Receipt Date: 20150831
  Transmission Date: 20151125
  Serious: No
  Sender: FDA-Public Use
  Company Number: US-ELI_LILLY_AND_COMPANY-US200908000265

PATIENT
  Age: 53 Year
  Sex: Male

DRUGS (4)
  1. CYMBALTA [Suspect]
     Active Substance: DULOXETINE HYDROCHLORIDE
     Indication: MAJOR DEPRESSION
     Dosage: 30 MG, UNK
  2. CYMBALTA [Suspect]
     Active Substance: DULOXETINE HYDROCHLORIDE
     Dosage: 20 MG, UNK
  3. MOTRIN [Concomitant]
     Active Substance: IBUPROFEN
  4. TYLENOL                                 /SCH/ [Concomitant]

REACTIONS (4)
  - Hyperglycaemia [Unknown]
  - Decreased appetite [Unknown]
  - Cystitis [Unknown]
  - Weight decreased [Unknown]
